FAERS Safety Report 5200907-1 (Version None)
Quarter: 2007Q1

REPORT INFORMATION
  Report Type: 
  Country: None (occurrence: None)
  Receive Date: 20070108
  Receipt Date: 20070103
  Transmission Date: 20070707
  Serious: Yes (Death)
  Sender: FDA-Public Use
  Company Number: PHBS2007SE00463

PATIENT
  Age: 44 Year
  Sex: Male

DRUGS (10)
  1. SANDOSTATIN [Suspect]
     Indication: NEOPLASM MALIGNANT
     Dosage: 200 TO 400 MG/DAY
     Route: 048
     Dates: start: 20051227
  2. SANDOSTATIN [Suspect]
     Dosage: 500 MG, BID
     Route: 048
     Dates: start: 20060706, end: 20060719
  3. SANDOSTATIN [Suspect]
     Dosage: 250 MG/DAY
     Route: 048
     Dates: start: 20060720
  4. FRAGMIN [Concomitant]
  5. TEGRETOL [Concomitant]
     Route: 054
  6. MORFIN [Concomitant]
  7. VOLTAREN [Concomitant]
  8. LOSEC [Concomitant]
  9. STESOLID [Concomitant]
  10. BETAPRED [Concomitant]

REACTIONS (5)
  - ANAEMIA [None]
  - APATHY [None]
  - COORDINATION ABNORMAL [None]
  - DECREASED ACTIVITY [None]
  - DEHYDRATION [None]
